FAERS Safety Report 7079907-5 (Version None)
Quarter: 2010Q4

REPORT INFORMATION
  Report Type: 
  Country: None (occurrence: None)
  Receive Date: 20101102
  Receipt Date: 20101025
  Transmission Date: 20110411
  Serious: Yes (Other)
  Sender: FDA-Public Use
  Company Number: DE-PFIZER INC-2010115752

PATIENT
  Age: 52 Year
  Sex: Female

DRUGS (2)
  1. AROMASIN [Suspect]
     Indication: BREAST CANCER FEMALE
     Dosage: 1 DF, 1X/DAY
     Route: 048
     Dates: start: 20100111
  2. ZOMETA [Concomitant]
     Dosage: UNK, EVERY 4 WEEKS

REACTIONS (4)
  - DYSPNOEA [None]
  - HOT FLUSH [None]
  - HYPOTENSION [None]
  - MENTAL DISORDER [None]
